FAERS Safety Report 6717690-0 (Version None)
Quarter: 2010Q2

REPORT INFORMATION
  Report Type: 
  Country: None (occurrence: None)
  Receive Date: 20100505
  Receipt Date: 20100423
  Transmission Date: 20101027
  Serious: Yes (Other)
  Sender: FDA-Public Use
  Company Number: 2008-178051-NL

PATIENT
  Age: 24 Year
  Sex: Female
  Weight: 58.1 kg

DRUGS (13)
  1. NUVARING [Suspect]
     Indication: CONTRACEPTION
     Dosage: VAG
     Route: 067
     Dates: start: 20060401, end: 20080101
  2. BENADRYL [Concomitant]
  3. ACETAMINOPHEN [Concomitant]
  4. SYNTHROID [Concomitant]
  5. PROPOXLYPHENE NAPSYLATE [Concomitant]
  6. W/ACETAMINOPHENE [Concomitant]
  7. CEPHALEXIN [Concomitant]
  8. PROVENTIL-HFA [Concomitant]
  9. SSKI [Concomitant]
  10. METOPROLOL TARTRATE [Concomitant]
  11. NADOLOL [Concomitant]
  12. LEVOTHYROXINE SODIUM [Concomitant]
  13. METHIMAZOLE [Concomitant]

REACTIONS (30)
  - ACUTE SINUSITIS [None]
  - ALOPECIA [None]
  - AMNIORRHOEA [None]
  - APHTHOUS STOMATITIS [None]
  - ASTHMA [None]
  - BALANCE DISORDER [None]
  - BASEDOW'S DISEASE [None]
  - BLINDNESS [None]
  - COAGULOPATHY [None]
  - COUGH [None]
  - DYSKINESIA [None]
  - DYSPHAGIA [None]
  - DYSPNOEA [None]
  - FATIGUE [None]
  - FEELING JITTERY [None]
  - HEADACHE [None]
  - MIGRAINE [None]
  - NAUSEA [None]
  - OEDEMA MOUTH [None]
  - OROPHARYNGEAL PAIN [None]
  - PAIN [None]
  - PARAESTHESIA [None]
  - PHARYNGITIS [None]
  - PYREXIA [None]
  - SINUS TACHYCARDIA [None]
  - TONGUE PARALYSIS [None]
  - TRANSIENT ISCHAEMIC ATTACK [None]
  - UPPER RESPIRATORY TRACT INFECTION [None]
  - VISUAL ACUITY REDUCED [None]
  - VOMITING [None]
